FAERS Safety Report 21003202 (Version 1)
Quarter: 2022Q2

REPORT INFORMATION
  Report Type: Spontaneous
  Country: US (occurrence: None)
  Receive Date: 20220623
  Receipt Date: 20220623
  Transmission Date: 20220721
  Serious: Yes (Hospitalization)
  Sender: FDA-Public Use
  Company Number: None

PATIENT
  Age: 58 Year
  Sex: Male

DRUGS (19)
  1. OPSUMIT [Suspect]
     Active Substance: MACITENTAN
     Indication: Pulmonary arterial hypertension
     Dosage: FREQUENCY : DAILY;?
     Route: 048
     Dates: start: 20151113
  2. TADALAFIL [Concomitant]
     Active Substance: TADALAFIL
  3. UPTRAVI [Concomitant]
     Active Substance: SELEXIPAG
  4. DULOXETINE [Concomitant]
     Active Substance: DULOXETINE
  5. ALBUTEROL SULFATE [Concomitant]
     Active Substance: ALBUTEROL SULFATE
  6. ALBUTEROL [Concomitant]
     Active Substance: ALBUTEROL
  7. PANTOPRAZOLE [Concomitant]
     Active Substance: PANTOPRAZOLE
  8. WIXELA INHUB [Concomitant]
     Active Substance: FLUTICASONE PROPIONATE\SALMETEROL XINAFOATE
  9. dogoxin [Concomitant]
  10. ASPIRIN [Concomitant]
     Active Substance: ASPIRIN
  11. BUPROPION [Concomitant]
     Active Substance: BUPROPION
  12. ROSUVASTATIN [Concomitant]
     Active Substance: ROSUVASTATIN
  13. SPIRONOLACTONE [Concomitant]
     Active Substance: SPIRONOLACTONE
  14. COLACE [Concomitant]
     Active Substance: DOCUSATE SODIUM
  15. TORSEMIDE [Concomitant]
     Active Substance: TORSEMIDE
  16. COLCHICINE [Concomitant]
     Active Substance: COLCHICINE
  17. CYCLOBENZAPRINE [Concomitant]
     Active Substance: CYCLOBENZAPRINE
  18. TYLENOL [Concomitant]
     Active Substance: ACETAMINOPHEN
  19. VITAMINS [Concomitant]
     Active Substance: VITAMINS

REACTIONS (4)
  - Fatigue [None]
  - Dyspnoea exertional [None]
  - Right ventricular failure [None]
  - Polyuria [None]

NARRATIVE: CASE EVENT DATE: 20220613
